FAERS Safety Report 7951505-8 (Version None)
Quarter: 2011Q4

REPORT INFORMATION
  Report Type: 
  Country: None (occurrence: None)
  Receive Date: 20111201
  Receipt Date: 20111119
  Transmission Date: 20120403
  Serious: Yes (Hospitalization)
  Sender: FDA-Public Use
  Company Number: US-BAYER-2011-049573

PATIENT
  Age: 32 Year
  Sex: Female
  Weight: 82 kg

DRUGS (5)
  1. NAPROXEN (ALEVE) [Concomitant]
     Dosage: UNK
     Dates: start: 20010101
  2. YASMIN [Suspect]
     Indication: ACNE
     Dosage: UNK
     Route: 048
     Dates: start: 20030701, end: 20030911
  3. PHENERGAN [Concomitant]
  4. MOTRIN [Concomitant]
     Dosage: UNK
     Dates: start: 20010101
  5. YASMIN [Suspect]
     Indication: MENSTRUAL CYCLE MANAGEMENT

REACTIONS (5)
  - PAIN [None]
  - PULMONARY EMBOLISM [None]
  - EMOTIONAL DISTRESS [None]
  - ANXIETY [None]
  - GENERAL PHYSICAL HEALTH DETERIORATION [None]
